FAERS Safety Report 20784032 (Version 2)
Quarter: 2022Q2

REPORT INFORMATION
  Report Type: Spontaneous
  Country: DE (occurrence: DE)
  Receive Date: 20220504
  Receipt Date: 20220520
  Transmission Date: 20220720
  Serious: Yes (Hospitalization, Other)
  Sender: FDA-Public Use
  Company Number: DE-JNJFOC-20220502635

PATIENT
  Age: 50 Year
  Sex: Female
  Weight: 55 kg

DRUGS (1)
  1. REMICADE [Suspect]
     Active Substance: INFLIXIMAB
     Indication: Crohn^s disease
     Route: 042
     Dates: end: 2013

REACTIONS (12)
  - Chronic kidney disease [Unknown]
  - Cachexia [Unknown]
  - Pulmonary embolism [Unknown]
  - Deep vein thrombosis [Unknown]
  - Intestinal fistula [Unknown]
  - Seizure [Unknown]
  - Somnolence [Unknown]
  - Sepsis [Unknown]
  - Crohn^s disease [Unknown]
  - Pulmonary tuberculosis [Unknown]
  - Aspergillus infection [Unknown]
  - Anaemia [Unknown]

NARRATIVE: CASE EVENT DATE: 20180701
